FAERS Safety Report 7579330-0 (Version None)
Quarter: 2011Q2

REPORT INFORMATION
  Report Type: 
  Country: None (occurrence: None)
  Receive Date: 20110628
  Receipt Date: 20110608
  Transmission Date: 20111010
  Serious: No
  Sender: FDA-Public Use
  Company Number: US-BAYER-2011-049772

PATIENT
  Sex: Female

DRUGS (1)
  1. ALEVE (CAPLET) [Suspect]
     Route: 048

REACTIONS (9)
  - PHOTOSENSITIVITY REACTION [None]
  - SKIN DISCOLOURATION [None]
  - ERYTHEMA [None]
  - PAIN [None]
  - BLISTER [None]
  - SKIN EXFOLIATION [None]
  - CHILLS [None]
  - HYPERAESTHESIA [None]
  - FEELING COLD [None]
